FAERS Safety Report 8901661 (Version 1)
Quarter: 2012Q4

REPORT INFORMATION
  Report Type: Spontaneous
  Country: US (occurrence: None)
  Receive Date: 20121108
  Receipt Date: 20121108
  Transmission Date: 20130627
  Serious: No
  Sender: FDA-Public Use
  Company Number: None

PATIENT
  Age: 69 Year
  Sex: Male
  Weight: 121.9 kg

DRUGS (1)
  1. AMLODIPINE [Suspect]
     Dosage: 1 TAB  EVERY DAY  PO
     Route: 048
     Dates: start: 20080722, end: 20110322

REACTIONS (14)
  - Oedema peripheral [None]
  - Oedema peripheral [None]
  - Condition aggravated [None]
  - Pain in extremity [None]
  - Carotid bruit [None]
  - Heart rate decreased [None]
  - Pain in extremity [None]
  - Oedema peripheral [None]
  - Blood pressure diastolic decreased [None]
  - Coronary artery disease [None]
  - Hypertension [None]
  - Diabetes mellitus [None]
  - Renal failure chronic [None]
  - Unevaluable event [None]
